FAERS Safety Report 26045816 (Version 1)
Quarter: 2025Q4

REPORT INFORMATION
  Report Type: Spontaneous
  Country: US (occurrence: None)
  Receive Date: 20251113
  Receipt Date: 20251113
  Transmission Date: 20260118
  Serious: Yes (Hospitalization)
  Sender: FDA-CTU
  Company Number: None

PATIENT
  Sex: Female

DRUGS (3)
  1. VERZENIO [Suspect]
     Active Substance: ABEMACICLIB
     Indication: Breast cancer female
     Dosage: 150  MG DAILY ORAL ?
     Route: 048
  2. LYNPARZA [Suspect]
     Active Substance: OLAPARIB
  3. PAXLOVID [Suspect]
     Active Substance: NIRMATRELVIR\RITONAVIR

REACTIONS (5)
  - Drug interaction [None]
  - Manic symptom [None]
  - Paranoia [None]
  - Poor quality sleep [None]
  - Therapy change [None]
